FAERS Safety Report 8448748 (Version 2)
Quarter: 2013Q1

REPORT INFORMATION
  Report Type: Spontaneous
  Country: US (occurrence: US)
  Receive Date: 20120308
  Receipt Date: 20130308
  Transmission Date: 20140127
  Serious: No
  Sender: FDA-Public Use
  Company Number: US-GLAXOSMITHKLINE-A0937462A

PATIENT
  Age: 70 Year
  Sex: Male

DRUGS (1)
  1. NICORETTE [Suspect]
     Indication: TOBACCO ABUSE
     Route: 002

REACTIONS (4)
  - Nicotine dependence [Unknown]
  - Intentional drug misuse [Unknown]
  - Drug administration error [Unknown]
  - Therapeutic response unexpected [Unknown]
